FAERS Safety Report 20044208 (Version 2)
Quarter: 2021Q4

REPORT INFORMATION
  Report Type: Spontaneous
  Country: EG (occurrence: EG)
  Receive Date: 20211108
  Receipt Date: 20211115
  Transmission Date: 20220303
  Serious: Yes (Other)
  Sender: FDA-Public Use
  Company Number: EG-NOVARTISPH-NVSC2021EG250520

PATIENT
  Sex: Female

DRUGS (6)
  1. CYCLOSPORINE [Suspect]
     Active Substance: CYCLOSPORINE
     Indication: Immunosuppressant drug therapy
     Dosage: 100 MG, QD (3 TABLETS)
     Route: 048
     Dates: start: 20210904
  2. CYCLOSPORINE [Suspect]
     Active Substance: CYCLOSPORINE
     Dosage: 50 MG, QD (6 TABLETS)
     Route: 048
     Dates: start: 20210911
  3. PHENIRAMINE [Concomitant]
     Active Substance: PHENIRAMINE
     Indication: Stevens-Johnson syndrome
     Dosage: UNK
     Route: 065
     Dates: start: 20210904, end: 20210911
  4. FEXOFENADINE [Concomitant]
     Active Substance: FEXOFENADINE HYDROCHLORIDE
     Indication: Stevens-Johnson syndrome
     Dosage: 180 MG, QD (1 TABLET)
     Route: 048
     Dates: start: 20210912, end: 20211012
  5. LYRICA [Concomitant]
     Active Substance: PREGABALIN
     Indication: Pain
     Dosage: 75 MG, QD (3 CAPSULES)
     Route: 048
     Dates: start: 20210912, end: 20211004
  6. NALBUPHINE HYDROCHLORIDE [Concomitant]
     Active Substance: NALBUPHINE HYDROCHLORIDE
     Indication: Pain
     Dosage: UNK
     Route: 065
     Dates: start: 20210904, end: 20210911

REACTIONS (3)
  - Hair growth abnormal [Not Recovered/Not Resolved]
  - Menstrual disorder [Not Recovered/Not Resolved]
  - Acne [Not Recovered/Not Resolved]

NARRATIVE: CASE EVENT DATE: 20210904
